FAERS Safety Report 7442883-7 (Version None)
Quarter: 2011Q2

REPORT INFORMATION
  Report Type: 
  Country: None (occurrence: None)
  Receive Date: 20110428
  Receipt Date: 20110420
  Transmission Date: 20111010
  Serious: Yes (Hospitalization, Other)
  Sender: FDA-Public Use
  Company Number: PHHY2011IT33408

PATIENT
  Sex: Female

DRUGS (1)
  1. VOLTAREN [Suspect]
     Indication: ARTHRALGIA
     Dosage: 75 MG, DAILY
     Route: 030
     Dates: start: 20110124

REACTIONS (2)
  - EMBOLIA CUTIS MEDICAMENTOSA [None]
  - GANGRENE [None]
